FAERS Safety Report 18721415 (Version 1)
Quarter: 2021Q1

REPORT INFORMATION
  Report Type: Spontaneous
  Country: CA (occurrence: CA)
  Receive Date: 20210110
  Receipt Date: 20210110
  Transmission Date: 20210419
  Serious: Yes (Hospitalization, Other)
  Sender: FDA-Public Use
  Company Number: CA-TEVA-2020-CA-1865831

PATIENT
  Age: 50 Year
  Sex: Female

DRUGS (41)
  1. PREGABALIN. [Interacting]
     Active Substance: PREGABALIN
     Indication: COMPLEX REGIONAL PAIN SYNDROME
     Route: 065
  2. SPIRONOLACTONE. [Interacting]
     Active Substance: SPIRONOLACTONE
     Indication: COMPLEX REGIONAL PAIN SYNDROME
     Route: 065
  3. CIMETIDINE [Interacting]
     Active Substance: CIMETIDINE
     Indication: COMPLEX REGIONAL PAIN SYNDROME
     Route: 065
  4. KETAMINE [Interacting]
     Active Substance: KETAMINE
     Route: 042
  5. LITHIUM CARBONATE. [Interacting]
     Active Substance: LITHIUM CARBONATE
     Indication: COMPLEX REGIONAL PAIN SYNDROME
     Route: 065
  6. MAGNESIUM GLUCONATE [Interacting]
     Active Substance: MAGNESIUM GLUCONATE
     Indication: MIGRAINE PROPHYLAXIS
     Route: 065
  7. PREDNISONE. [Interacting]
     Active Substance: PREDNISONE
     Dosage: 95 MILLIGRAM DAILY;
     Route: 065
  8. AMITRIPTYLINE HYDROCHLORIDE. [Interacting]
     Active Substance: AMITRIPTYLINE HYDROCHLORIDE
     Indication: COMPLEX REGIONAL PAIN SYNDROME
     Route: 065
  9. MEXILETINE [Interacting]
     Active Substance: MEXILETINE
     Indication: COMPLEX REGIONAL PAIN SYNDROME
     Route: 065
  10. VITAMIN C ASCORBIC ACID TAB 1000MG [Interacting]
     Active Substance: ASCORBIC ACID
     Indication: COMPLEX REGIONAL PAIN SYNDROME
     Route: 065
  11. ERELZI [Interacting]
     Active Substance: ETANERCEPT-SZZS
     Indication: COMPLEX REGIONAL PAIN SYNDROME
     Route: 065
  12. PREDNISONE. [Suspect]
     Active Substance: PREDNISONE
     Indication: COMPLEX REGIONAL PAIN SYNDROME
     Dosage: 85 MILLIGRAM DAILY;
     Route: 065
  13. MYCOPHENOLATE MOFETIL. [Interacting]
     Active Substance: MYCOPHENOLATE MOFETIL
     Indication: COMPLEX REGIONAL PAIN SYNDROME
     Route: 065
  14. MAGNESIUM GLUCONATE [Interacting]
     Active Substance: MAGNESIUM GLUCONATE
     Indication: COMPLEX REGIONAL PAIN SYNDROME
     Route: 065
  15. VITAMIN B2 ? RIBOFLAVIN 100 MG [Interacting]
     Active Substance: RIBOFLAVIN
     Indication: MIGRAINE PROPHYLAXIS
     Route: 065
  16. PREDNISONE. [Interacting]
     Active Substance: PREDNISONE
     Dosage: 5 MILLIGRAM DAILY;
     Route: 065
  17. CLONIDINE. [Interacting]
     Active Substance: CLONIDINE
     Indication: COMPLEX REGIONAL PAIN SYNDROME
     Route: 065
  18. BUMETANIDE. [Interacting]
     Active Substance: BUMETANIDE
     Indication: COMPLEX REGIONAL PAIN SYNDROME
     Route: 065
  19. KETAMINE [Interacting]
     Active Substance: KETAMINE
     Route: 048
  20. LIDOCAINE. [Interacting]
     Active Substance: LIDOCAINE
     Route: 061
  21. N?ACETYLCYSTEINE [Interacting]
     Active Substance: ACETYLCYSTEINE
     Indication: COMPLEX REGIONAL PAIN SYNDROME
     Route: 065
  22. PREDNISONE. [Interacting]
     Active Substance: PREDNISONE
     Indication: COMPLEX REGIONAL PAIN SYNDROME
     Dosage: 13 MILLIGRAM DAILY;
     Route: 065
  23. EZETIMIBE. [Concomitant]
     Active Substance: EZETIMIBE
     Route: 065
  24. AMLODIPINE BESILATE [Interacting]
     Active Substance: AMLODIPINE BESYLATE
     Indication: COMPLEX REGIONAL PAIN SYNDROME
     Route: 065
  25. METOPROLOL. [Interacting]
     Active Substance: METOPROLOL
     Indication: COMPLEX REGIONAL PAIN SYNDROME
     Route: 065
  26. NALTREXONE HYDROCHLORIDE. [Interacting]
     Active Substance: NALTREXONE HYDROCHLORIDE
     Indication: COMPLEX REGIONAL PAIN SYNDROME
     Dosage: 4.5 MILLIGRAM DAILY;
     Route: 065
  27. CAPSAICIN. [Interacting]
     Active Substance: CAPSAICIN
     Indication: COMPLEX REGIONAL PAIN SYNDROME
     Route: 061
  28. KETAMINE [Interacting]
     Active Substance: KETAMINE
     Indication: COMPLEX REGIONAL PAIN SYNDROME
     Route: 061
  29. LIDOCAINE. [Interacting]
     Active Substance: LIDOCAINE
     Indication: COMPLEX REGIONAL PAIN SYNDROME
     Route: 042
  30. PALMIDROL [Interacting]
     Active Substance: PALMIDROL
     Indication: COMPLEX REGIONAL PAIN SYNDROME
     Route: 065
  31. MEMANTINE HYDROCHLORIDE. [Interacting]
     Active Substance: MEMANTINE HYDROCHLORIDE
     Indication: COMPLEX REGIONAL PAIN SYNDROME
     Route: 065
  32. MONTELUKAST [Interacting]
     Active Substance: MONTELUKAST SODIUM
     Indication: COMPLEX REGIONAL PAIN SYNDROME
     Route: 065
  33. APREMILAST [Interacting]
     Active Substance: APREMILAST
     Indication: COMPLEX REGIONAL PAIN SYNDROME
     Route: 065
  34. HYDROXYCHLOROQUINE SULFATE. [Interacting]
     Active Substance: HYDROXYCHLOROQUINE SULFATE
     Indication: COMPLEX REGIONAL PAIN SYNDROME
     Route: 065
  35. PENTOXIFYLLINE. [Interacting]
     Active Substance: PENTOXIFYLLINE
     Indication: COMPLEX REGIONAL PAIN SYNDROME
     Route: 065
  36. VITAMIN B2 ? RIBOFLAVIN 100 MG [Interacting]
     Active Substance: RIBOFLAVIN
     Indication: COMPLEX REGIONAL PAIN SYNDROME
     Route: 065
  37. TRAZODONE [Concomitant]
     Active Substance: TRAZODONE HYDROCHLORIDE
     Route: 065
  38. DILTIAZEM HYDROCHLORIDE. [Interacting]
     Active Substance: DILTIAZEM HYDROCHLORIDE
     Indication: COMPLEX REGIONAL PAIN SYNDROME
     Route: 065
  39. IBUDILAST [Interacting]
     Active Substance: IBUDILAST
     Indication: COMPLEX REGIONAL PAIN SYNDROME
     Route: 065
  40. ANAKINRA [Interacting]
     Active Substance: ANAKINRA
     Indication: COMPLEX REGIONAL PAIN SYNDROME
     Route: 065
  41. CALCITONIN [Concomitant]
     Active Substance: CALCITONIN
     Route: 065

REACTIONS (21)
  - Body tinea [Recovered/Resolved]
  - Cellulitis [Recovered/Resolved]
  - Fatigue [Recovered/Resolved]
  - Hypertension [Recovered/Resolved]
  - Impaired quality of life [Recovered/Resolved]
  - Oral herpes [Recovered/Resolved]
  - Weight increased [Recovered/Resolved]
  - Drug ineffective [Recovered/Resolved]
  - Bone density decreased [Recovered/Resolved]
  - Infection susceptibility increased [Recovered/Resolved]
  - Poor quality sleep [Recovered/Resolved]
  - Cataract [Recovered/Resolved]
  - Contusion [Recovered/Resolved]
  - Hyperlipidaemia [Recovered/Resolved]
  - Inhibitory drug interaction [Recovered/Resolved]
  - Skin disorder [Recovered/Resolved]
  - Impaired work ability [Recovered/Resolved]
  - Purpura [Recovered/Resolved]
  - Glucose tolerance impaired [Recovered/Resolved]
  - Herpes zoster [Recovered/Resolved]
  - Insomnia [Recovered/Resolved]
